FAERS Safety Report 5052936-9 (Version None)
Quarter: 2006Q3

REPORT INFORMATION
  Report Type: 
  Country: None (occurrence: None)
  Receive Date: 20060712
  Receipt Date: 20060630
  Transmission Date: 20061208
  Serious: Yes (Hospitalization)
  Sender: FDA-Public Use
  Company Number: 226211

PATIENT
  Age: 56 Year
  Sex: Male
  Weight: 79.8 kg

DRUGS (17)
  1. AVASTIN [Suspect]
     Indication: PANCREATIC NEOPLASM
     Dosage: 5 MG/KG, Q2W, INTRAVENOUS
     Route: 042
     Dates: start: 20060502, end: 20060530
  2. DEXAMETHASONE [Suspect]
     Indication: PANCREATIC NEOPLASM
     Dosage: 20 MG, Q2W, INTRAVENOUS
     Route: 042
     Dates: start: 20060502, end: 20060530
  3. LORAZEPAM [Suspect]
     Indication: PANCREATIC NEOPLASM
     Dosage: 1 MG, Q2W, ORAL
     Route: 048
     Dates: start: 20060502, end: 20060530
  4. GRANISETRON (GRANISETRON HYDROCHLORIDE) [Suspect]
     Indication: PANCREATIC NEOPLASM
     Dosage: 10 AUG/KG, Q2W, INTRAVENOUS
     Route: 042
     Dates: start: 20060502, end: 20060530
  5. OXALIPLATIN (OXALIPLATIN) [Suspect]
     Indication: PANCREATIC NEOPLASM
     Dosage: 85 MG/M2, Q2W, INTRAVENOUS
     Route: 042
     Dates: start: 20060502, end: 20060530
  6. LEUCOVORIN CALCIUM [Suspect]
     Indication: PANCREATIC NEOPLASM
     Dosage: 200 MG/M2, Q2W, INTRAVENOUS
     Route: 042
     Dates: start: 20060502, end: 20060530
  7. FLUOROURACIL [Suspect]
     Indication: PANCREATIC NEOPLASM
     Dosage: Q2W
     Dates: start: 20060502, end: 20060530
  8. ACETAMINOPHEN [Concomitant]
  9. IMODIUM [Concomitant]
  10. LORAZEPAM [Concomitant]
  11. VICODIN [Concomitant]
  12. ATIVAN [Concomitant]
  13. LISINOPRIL [Concomitant]
  14. NORVASC [Concomitant]
  15. ASPIRIN [Concomitant]
  16. ALLEGRA [Concomitant]
  17. PRILOSEC [Concomitant]

REACTIONS (5)
  - ABDOMINAL PAIN [None]
  - DIARRHOEA [None]
  - ENTERITIS [None]
  - FEBRILE NEUTROPENIA [None]
  - SMALL INTESTINAL OBSTRUCTION [None]
